FAERS Safety Report 8902625 (Version 1)
Quarter: 2012Q4

REPORT INFORMATION
  Report Type: 
  Country: IT (occurrence: IT)
  Receive Date: 20121112
  Receipt Date: 20121112
  Transmission Date: 20130627
  Serious: Yes (Other)
  Sender: FDA-Public Use
  Company Number: PHHY2012IT102929

PATIENT
  Age: 37 Year
  Sex: Female

DRUGS (1)
  1. LEVOFLOXACIN [Suspect]
     Indication: CYSTITIS
     Dosage: 500 mg, UNK
     Route: 042
     Dates: start: 20121030

REACTIONS (6)
  - Renal colic [Recovered/Resolved]
  - Abdominal pain [Recovered/Resolved]
  - Strangury [Recovered/Resolved]
  - Chest pain [Recovered/Resolved]
  - Pollakiuria [Recovered/Resolved]
  - Erythema [Recovered/Resolved]
